FAERS Safety Report 10362797 (Version 1)
Quarter: 2014Q1

REPORT INFORMATION
  Report Type: Spontaneous
  Country: US (occurrence: None)
  Receive Date: 20140306
  Receipt Date: 20140306
  Transmission Date: 20141002
  Serious: Yes (Hospitalization)
  Sender: FDA-Public Use
  Company Number: 163-21880-13060649

PATIENT
  Age: 61 Year
  Sex: Female
  Weight: 100.7 kg

DRUGS (10)
  1. REVLIMID (LENALIDOMIDE) (25 MILLIGRAM, CAPSULES) [Suspect]
     Indication: PLASMA CELL MYELOMA
     Route: 048
     Dates: start: 20130406, end: 20130528
  2. VELCADE (BORTEZOMIB) (INJECTION) [Suspect]
     Indication: PRODUCT USED FOR UNKNOWN INDICATION
     Dosage: 742.8571 MG, 2 IN 1 WK, SC
     Route: 058
     Dates: start: 20130416
  3. ARANESP (DARBEPOETIN ALFA) (INJECTION) [Concomitant]
  4. ACYCLOVIR (ACICLOVIR) (TABLETS) [Concomitant]
  5. ASPIRIN (CHEWABLE TABLET) [Concomitant]
  6. AMBIEN (ZOLPIDEM TARTRATE) (TABLETS) [Concomitant]
  7. SYNTHROID (LEVOTHYROXINE SODIUM) (TABLETS) [Concomitant]
  8. VENLAFAXINE HCL (VENLAFAXINE HYDROCHLORIDE) (TABLETS) [Concomitant]
  9. METOPROLOL-HCTZ (TABLETS) [Concomitant]
  10. HYDROCODONE-HOMATROPINE (TABLETS) [Concomitant]

REACTIONS (3)
  - Pyrexia [None]
  - Pancytopenia [None]
  - Bacteraemia [None]
